FAERS Safety Report 20290571 (Version 1)
Quarter: 2022Q1

REPORT INFORMATION
  Report Type: Spontaneous
  Country: CA (occurrence: CA)
  Receive Date: 20220104
  Receipt Date: 20220104
  Transmission Date: 20220423
  Serious: Yes (Other)
  Sender: FDA-Public Use
  Company Number: CA-PFIZER INC-2021306812

PATIENT
  Age: 70 Year
  Sex: Male

DRUGS (2)
  1. XELJANZ [Suspect]
     Active Substance: TOFACITINIB CITRATE
     Indication: Psoriatic arthropathy
     Dosage: 5 MG, 2X/DAY
     Route: 048
     Dates: start: 20210216, end: 20210601
  2. ENBREL [Concomitant]
     Active Substance: ETANERCEPT
     Dosage: 1 DF, UNK
     Route: 065
     Dates: start: 201105

REACTIONS (3)
  - Myocardial infarction [Unknown]
  - Coronary artery disease [Unknown]
  - Dizziness [Unknown]

NARRATIVE: CASE EVENT DATE: 20210101
